FAERS Safety Report 4527759-7 (Version None)
Quarter: 2004Q4

REPORT INFORMATION
  Report Type: 
  Country: None (occurrence: None)
  Receive Date: 20041124
  Receipt Date: 20040116
  Transmission Date: 20050328
  Serious: Yes (Hospitalization)
  Sender: FDA-Public Use
  Company Number: 310003K04USA

PATIENT
  Age: 31 Year
  Sex: Female
  Weight: 50.8029 kg

DRUGS (3)
  1. GONAL-F [Suspect]
     Indication: INFERTILITY
     Dosage: 112
     Dates: start: 20031029, end: 20031106
  2. OVIDREL [Suspect]
     Indication: INFERTILITY FEMALE
     Dosage: 250 MG, 1 IN 1 DAYS
     Dates: start: 20031107, end: 20031107
  3. VITAMINS NOS [Concomitant]

REACTIONS (7)
  - ABDOMINAL PAIN [None]
  - ABORTION SPONTANEOUS [None]
  - BLOOD PRESSURE INCREASED [None]
  - CYST RUPTURE [None]
  - HYPERTENSION [None]
  - INTRA-UTERINE DEATH [None]
  - OVARIAN CYST [None]
